FAERS Safety Report 15424618 (Version 2)
Quarter: 2018Q4

REPORT INFORMATION
  Report Type: Spontaneous
  Country: CH (occurrence: CH)
  Receive Date: 20180925
  Receipt Date: 20181017
  Transmission Date: 20190204
  Serious: Yes (Death, Life-Threatening, Hospitalization, Other)
  Sender: FDA-Public Use
  Company Number: CH-JNJFOC-20180924802

PATIENT
  Age: 85 Year
  Sex: Male
  Weight: 72.8 kg

DRUGS (21)
  1. EDOXABAN [Concomitant]
     Active Substance: EDOXABAN TOSYLATE
     Route: 065
     Dates: start: 20170523, end: 20180813
  2. POTASSIUM PERMANGANATE [Concomitant]
     Active Substance: POTASSIUM PERMANGANATE
     Route: 061
  3. VOLTAREN [Suspect]
     Active Substance: DICLOFENAC SODIUM
     Indication: INFLUENZA LIKE ILLNESS
     Route: 048
     Dates: start: 201802, end: 201802
  4. CANDESARTAN. [Concomitant]
     Active Substance: CANDESARTAN
     Indication: HYPERTENSION
     Route: 048
     Dates: start: 20180830
  5. XARELTO [Suspect]
     Active Substance: RIVAROXABAN
     Indication: ATRIAL FIBRILLATION
     Route: 048
     Dates: start: 20180813, end: 20180827
  6. SPIRICORT [Concomitant]
     Active Substance: PREDNISOLONE
     Indication: PRURITUS GENERALISED
     Route: 065
     Dates: start: 20180822, end: 20180824
  7. SPIRICORT [Concomitant]
     Active Substance: PREDNISOLONE
     Indication: BLISTER
     Route: 065
     Dates: start: 20180822, end: 20180824
  8. CETIRIZINE [Concomitant]
     Active Substance: CETIRIZINE HYDROCHLORIDE
     Route: 065
     Dates: start: 20180822, end: 20180824
  9. DAFALGAN [Concomitant]
     Active Substance: ACETAMINOPHEN
     Indication: PAIN OF SKIN
     Route: 065
  10. SIMCORA [Concomitant]
     Active Substance: SIMVASTATIN
     Indication: CORONARY ARTERY DISEASE
     Route: 048
     Dates: start: 2014, end: 20180827
  11. ALGIFOR [Concomitant]
     Active Substance: IBUPROFEN
     Indication: PAIN OF SKIN
     Route: 065
  12. FLAMMAZINE [Concomitant]
     Active Substance: SILVER SULFADIAZINE
     Route: 061
  13. CANDESARTAN. [Concomitant]
     Active Substance: CANDESARTAN
     Indication: HYPERTENSION
     Route: 048
     Dates: start: 2013, end: 20180827
  14. IALUGEN PLUS [Concomitant]
     Route: 065
  15. VOLTAREN [Suspect]
     Active Substance: DICLOFENAC SODIUM
     Indication: INFLUENZA LIKE ILLNESS
     Route: 048
     Dates: start: 20180819, end: 20180819
  16. CONCOR [Concomitant]
     Active Substance: BISOPROLOL FUMARATE
     Indication: CORONARY ARTERY DISEASE
     Route: 048
     Dates: start: 2014, end: 20180827
  17. CONCOR [Concomitant]
     Active Substance: BISOPROLOL FUMARATE
     Indication: CORONARY ARTERY DISEASE
     Route: 048
     Dates: start: 20180830
  18. SIMCORA [Concomitant]
     Active Substance: SIMVASTATIN
     Indication: CORONARY ARTERY DISEASE
     Route: 048
     Dates: start: 20180830
  19. SPIRICORT [Concomitant]
     Active Substance: PREDNISOLONE
     Indication: ERYTHEMA
     Route: 065
     Dates: start: 20180822, end: 20180824
  20. IMMUNE GLOBULIN [Concomitant]
     Active Substance: HUMAN IMMUNOGLOBULIN G
     Route: 065
  21. METOCLOPRAMIDE. [Concomitant]
     Active Substance: METOCLOPRAMIDE
     Route: 048

REACTIONS (2)
  - Exfoliative rash [Recovered/Resolved]
  - Toxic epidermal necrolysis [Fatal]

NARRATIVE: CASE EVENT DATE: 201803
